FAERS Safety Report 15213529 (Version 1)
Quarter: 2018Q4

REPORT INFORMATION
  Report Type: Spontaneous
  Country: FR (occurrence: FR)
  Receive Date: 20180730
  Receipt Date: 20180730
  Transmission Date: 20190204
  Serious: Yes (Hospitalization)
  Sender: FDA-Public Use
  Company Number: FR-SA-2018SA198573

PATIENT
  Age: 26 Year
  Sex: Female

DRUGS (5)
  1. TERCIAN [Suspect]
     Active Substance: CYAMEMAZINE
     Indication: SUICIDE ATTEMPT
     Dosage: 1 DF, QD
     Route: 048
     Dates: start: 20170302, end: 20170302
  2. ALPRAZOLAM. [Suspect]
     Active Substance: ALPRAZOLAM
     Indication: SUICIDE ATTEMPT
     Dosage: 1 DF, QD
     Route: 048
     Dates: start: 20170302, end: 20170302
  3. ZOLPIDEM TARTRATE. [Suspect]
     Active Substance: ZOLPIDEM TARTRATE
     Indication: SUICIDE ATTEMPT
     Dosage: 1 DF, QD
     Route: 048
     Dates: start: 20170302, end: 20170302
  4. BIPRETERAX (INDAPAMIDE\PERINDOPRIL ERBUMINE) [Suspect]
     Active Substance: INDAPAMIDE\PERINDOPRIL ERBUMINE
     Indication: SUICIDE ATTEMPT
     Dosage: 1 DF, QD
     Route: 048
     Dates: start: 20170302, end: 20170302
  5. ZOPICLONE [Suspect]
     Active Substance: ZOPICLONE
     Indication: SUICIDE ATTEMPT
     Dosage: 1 DF, QD
     Route: 048
     Dates: start: 20170302, end: 20170302

REACTIONS (5)
  - Coma [Recovered/Resolved]
  - Sedation [Recovered/Resolved]
  - Toxicity to various agents [Recovered/Resolved]
  - Hypokinesia [Recovered/Resolved]
  - Bradyphrenia [Recovered/Resolved]

NARRATIVE: CASE EVENT DATE: 20170302
